FAERS Safety Report 9228351 (Version 2)
Quarter: 2013Q2

REPORT INFORMATION
  Report Type: Report from Study
  Country: GB (occurrence: GB)
  Receive Date: 20130412
  Receipt Date: 20130523
  Transmission Date: 20140414
  Serious: Yes (Hospitalization, Other)
  Sender: FDA-Public Use
  Company Number: GB-ROCHE-1212543

PATIENT
  Sex: 0

DRUGS (1)
  1. ALTEPLASE [Suspect]
     Indication: INTRAVENTRICULAR HAEMORRHAGE NEONATAL
     Dosage: 500 MCG/KG, SINGLE

REACTIONS (3)
  - Drug ineffective [Unknown]
  - Infection [Recovered/Resolved with Sequelae]
  - Central nervous system infection [Unknown]
